FAERS Safety Report 7043836-3 (Version None)
Quarter: 2010Q4

REPORT INFORMATION
  Report Type: 
  Country: None (occurrence: None)
  Receive Date: 20101013
  Receipt Date: 20101007
  Transmission Date: 20110411
  Serious: Yes (Other)
  Sender: FDA-Public Use
  Company Number: CA-PFIZER INC-2010127581

PATIENT
  Age: 42 Year
  Sex: Male

DRUGS (1)
  1. CHAMPIX [Suspect]
     Dosage: UNK
     Dates: start: 20100801, end: 20101001

REACTIONS (10)
  - CONSTIPATION [None]
  - DRY MOUTH [None]
  - DYSGEUSIA [None]
  - DYSPHAGIA [None]
  - HYPERSENSITIVITY [None]
  - HYPOAESTHESIA [None]
  - OEDEMA MOUTH [None]
  - PAROSMIA [None]
  - TONGUE BITING [None]
  - URTICARIA [None]
